FAERS Safety Report 13849140 (Version 1)
Quarter: 2017Q3

REPORT INFORMATION
  Report Type: Other
  Country: IT (occurrence: IT)
  Receive Date: 20170809
  Receipt Date: 20170809
  Transmission Date: 20171127
  Serious: Yes (Other)
  Sender: FDA-Public Use
  Company Number: IT-LUPIN PHARMACEUTICALS INC.-2016-03431

PATIENT
  Age: 38 Year
  Sex: Female

DRUGS (3)
  1. LEVETIRACETAM. [Suspect]
     Active Substance: LEVETIRACETAM
     Indication: LENNOX-GASTAUT SYNDROME
     Dosage: UNK UNK,UNK,UNKNOWN
     Route: 048
     Dates: start: 20160520, end: 20160520
  2. VIMPAT [Concomitant]
     Active Substance: LACOSAMIDE
     Indication: PRODUCT USED FOR UNKNOWN INDICATION
     Dosage: 400 MG,UNK,UNKNOWN
     Route: 048
  3. DINTOINA [Concomitant]
     Active Substance: PHENYTOIN SODIUM
     Indication: LENNOX-GASTAUT SYNDROME
     Dosage: 200 MG,UNK,UNKNOWN
     Route: 048

REACTIONS (1)
  - Seizure [Recovered/Resolved]

NARRATIVE: CASE EVENT DATE: 20160520
